FAERS Safety Report 9892131 (Version 2)
Quarter: 2014Q1

REPORT INFORMATION
  Report Type: Spontaneous
  Country: BR (occurrence: BR)
  Receive Date: 20140212
  Receipt Date: 20140220
  Transmission Date: 20141002
  Serious: Yes (Other)
  Sender: FDA-Public Use
  Company Number: BR-PFIZER INC-2014035340

PATIENT
  Age: 69 Year
  Sex: Male
  Weight: 85 kg

DRUGS (4)
  1. CARDURAN XL [Suspect]
     Indication: PROSTATOMEGALY
     Dosage: UNK
     Dates: start: 201401, end: 201402
  2. EUTHYROX [Concomitant]
     Indication: HYPOTHYROIDISM
     Dosage: UNK
     Dates: start: 2004
  3. PRESS PLUS [Concomitant]
     Indication: BLOOD PRESSURE
     Dosage: UNK
     Dates: start: 2009
  4. NAPRIX A [Concomitant]
     Indication: BLOOD PRESSURE
     Dosage: UNK
     Dates: start: 2009

REACTIONS (9)
  - Urinary retention [Recovered/Resolved]
  - Dysuria [Recovering/Resolving]
  - Nervousness [Recovered/Resolved]
  - Insomnia [Recovered/Resolved]
  - Local swelling [Recovered/Resolved]
  - Abdominal distension [Recovered/Resolved]
  - Fatigue [Recovered/Resolved]
  - Blood pressure increased [Recovering/Resolving]
  - Weight decreased [Unknown]
